FAERS Safety Report 18390334 (Version 1)
Quarter: 2020Q4

REPORT INFORMATION
  Report Type: Spontaneous
  Country: JP (occurrence: JP)
  Receive Date: 20201015
  Receipt Date: 20201015
  Transmission Date: 20210114
  Serious: Yes (Other)
  Sender: FDA-Public Use
  Company Number: JP-PFIZER INC-2020395508

PATIENT
  Sex: Male

DRUGS (1)
  1. VIAGRA [Suspect]
     Active Substance: SILDENAFIL CITRATE
     Dosage: 50 MG, 3 TO 4 TIMES A MONTH
     Route: 048

REACTIONS (4)
  - Aortic valve incompetence [Unknown]
  - Erythema [Unknown]
  - Headache [Unknown]
  - Cardiac valve disease [Unknown]
